FAERS Safety Report 8326823-4 (Version None)
Quarter: 2012Q2

REPORT INFORMATION
  Report Type: 
  Country: None (occurrence: None)
  Receive Date: 20120501
  Receipt Date: 20120425
  Transmission Date: 20120825
  Serious: Yes (Hospitalization)
  Sender: FDA-Public Use
  Company Number: JP-ABBOTT-11P-087-0721564-00

PATIENT
  Sex: Male
  Weight: 61.2 kg

DRUGS (15)
  1. CHLORPHENIRAMINE MALEATE [Concomitant]
     Indication: ADMINISTRATION RELATED REACTION
     Route: 048
     Dates: start: 20110228, end: 20110302
  2. HYDROCORTISONE SODIUM SUCCINATE [Concomitant]
     Indication: ADMINISTRATION RELATED REACTION
     Route: 041
     Dates: start: 20110228, end: 20110302
  3. HUMIRA [Suspect]
     Dates: start: 20110314, end: 20110314
  4. HUMIRA [Suspect]
     Indication: CROHN'S DISEASE
     Route: 058
     Dates: start: 20110228, end: 20110228
  5. HUMIRA [Suspect]
     Dates: start: 20110524, end: 20110605
  6. DIMETICONE [Concomitant]
     Indication: SUPPORTIVE CARE
     Route: 048
  7. HUMIRA [Suspect]
     Dates: start: 20110328, end: 20110424
  8. ALBUMIN TANNATE [Concomitant]
     Indication: SUPPORTIVE CARE
  9. ALBUMIN TANNATE [Concomitant]
     Indication: PROPHYLAXIS AGAINST DIARRHOEA
     Route: 048
     Dates: end: 20110425
  10. ACETAMINOPHEN [Concomitant]
     Indication: ADMINISTRATION RELATED REACTION
     Dates: start: 20110228, end: 20110302
  11. FAMOTIDINE [Concomitant]
     Indication: ADMINISTRATION RELATED REACTION
     Route: 048
     Dates: start: 20110228, end: 20110302
  12. HUMIRA [Suspect]
     Dates: start: 20110620, end: 20110703
  13. MESALAMINE [Concomitant]
     Indication: CROHN'S DISEASE
     Dosage: 3000MG DAILY
     Route: 048
  14. CLOSTRIDIUM BUTYRICUM [Concomitant]
     Indication: CROHN'S DISEASE
  15. TPN [Concomitant]
     Indication: CROHN'S DISEASE
     Route: 048
     Dates: start: 20110512

REACTIONS (2)
  - GASTROINTESTINAL INFLAMMATION [None]
  - ILEUS [None]
